FAERS Safety Report 6634497-3 (Version None)
Quarter: 2010Q1

REPORT INFORMATION
  Report Type: 
  Country: None (occurrence: None)
  Receive Date: 20100225
  Receipt Date: 20081103
  Transmission Date: 20100710
  Serious: Yes (Other)
  Sender: FDA-Public Use
  Company Number: US-JNJFOC-20080906017

PATIENT
  Age: 71 Year
  Sex: Female

DRUGS (1)
  1. IBUPROFEN [Suspect]
     Indication: DRUG USE FOR UNKNOWN INDICATION
     Dosage: 13 IBUPROFEN (UNSPECIFIED STRENGTH) OVER A FEW DAYS
     Dates: start: 20060101

REACTIONS (1)
  - GASTROINTESTINAL HAEMORRHAGE [None]
